FAERS Safety Report 5797813-0 (Version None)
Quarter: 2008Q3

REPORT INFORMATION
  Report Type: 
  Country: None (occurrence: None)
  Receive Date: 20080702
  Receipt Date: 20080626
  Transmission Date: 20090109
  Serious: Yes (Hospitalization, Other)
  Sender: FDA-Public Use
  Company Number: FR-JNJFOC-20080201744

PATIENT
  Age: 6 Decade
  Sex: Male

DRUGS (4)
  1. REMICADE [Suspect]
     Indication: CROHN'S DISEASE
     Route: 042
  2. METHOTREXATE [Suspect]
     Indication: CROHN'S DISEASE
     Route: 048
  3. CORTANCYL [Suspect]
     Route: 048
  4. CORTANCYL [Suspect]
     Indication: CROHN'S DISEASE
     Route: 048

REACTIONS (1)
  - MYCOBACTERIUM MARINUM INFECTION [None]
